FAERS Safety Report 13978511 (Version 2)
Quarter: 2017Q3

REPORT INFORMATION
  Report Type: Spontaneous
  Country: DE (occurrence: DE)
  Receive Date: 20170915
  Receipt Date: 20170925
  Transmission Date: 20171128
  Serious: Yes (Other)
  Sender: FDA-Public Use
  Company Number: DE-BAUSCH-BL-2017-026975

PATIENT
  Sex: Female

DRUGS (2)
  1. DEXAGEL [Suspect]
     Active Substance: DEXAMETHASONE SODIUM PHOSPHATE
     Indication: PURULENT DISCHARGE
     Route: 065
     Dates: start: 201708
  2. VIGAMOX [Suspect]
     Active Substance: MOXIFLOXACIN HYDROCHLORIDE
     Indication: PURULENT DISCHARGE
     Route: 065
     Dates: start: 201708

REACTIONS (4)
  - Eye irritation [Unknown]
  - Eye inflammation [Unknown]
  - Visual impairment [Not Recovered/Not Resolved]
  - Blood pressure systolic increased [Unknown]

NARRATIVE: CASE EVENT DATE: 2017
